FAERS Safety Report 20616903 (Version 1)
Quarter: 2022Q1

REPORT INFORMATION
  Report Type: Report from Study
  Country: EG (occurrence: EG)
  Receive Date: 20220321
  Receipt Date: 20220321
  Transmission Date: 20220424
  Serious: Yes (Other)
  Sender: FDA-Public Use
  Company Number: EG-NOVARTISPH-NVSC2022EG062688

PATIENT
  Age: 55 Year
  Sex: Female

DRUGS (7)
  1. GLIVEC [Suspect]
     Active Substance: IMATINIB MESYLATE
     Indication: Chronic myeloid leukaemia
     Dosage: 400 MG (1- 5 YEARS AGO), (1- 2 YEARS AGO OR MORE)
     Route: 065
  2. GLIVEC [Suspect]
     Active Substance: IMATINIB MESYLATE
     Indication: Chronic myeloid leukaemia
     Dosage: (2- 2 YEARS AGO OR MORE)
     Route: 065
     Dates: end: 20220313
  3. VASOPIN [Concomitant]
     Indication: Hypertension
     Dosage: UNK UNK, QD (HALF TABLET, 10 YEARS AGO TILL 2 OR 3 YEARS AGO)
     Route: 065
  4. VASOPIN [Concomitant]
     Dosage: 1 DOSAGE FORM, QD
     Route: 065
     Dates: start: 202201
  5. BISOPROLOL FUMARATE [Concomitant]
     Active Substance: BISOPROLOL FUMARATE
     Indication: Hypertension
     Dosage: 1 DOSAGE FORM, QD (10 YEARS AGO TILL 2 OR 3 YEARS AGO)
     Route: 065
  6. DEXAMETHASONE [Concomitant]
     Active Substance: DEXAMETHASONE
     Indication: Antiinflammatory therapy
     Dosage: UNK (10 DAYS AGO, 3 OR 4 TIMES/DAY)
     Route: 065
  7. DEXAMETHASONE [Concomitant]
     Active Substance: DEXAMETHASONE
     Indication: Pain in extremity

REACTIONS (9)
  - Supraventricular tachycardia [Not Recovered/Not Resolved]
  - White blood cell count decreased [Not Recovered/Not Resolved]
  - Meniscus injury [Recovering/Resolving]
  - Pain in extremity [Recovering/Resolving]
  - Bone pain [Recovering/Resolving]
  - Arthralgia [Recovering/Resolving]
  - Nasopharyngitis [Recovered/Resolved]
  - Cough [Recovered/Resolved]
  - Pyrexia [Recovered/Resolved]

NARRATIVE: CASE EVENT DATE: 20211201
